FAERS Safety Report 18398493 (Version 1)
Quarter: 2020Q4

REPORT INFORMATION
  Report Type: Spontaneous
  Country: CA (occurrence: CA)
  Receive Date: 20201019
  Receipt Date: 20201019
  Transmission Date: 20210114
  Serious: Yes (Other)
  Sender: FDA-Public Use
  Company Number: CA-BAYER-2020-221590

PATIENT
  Sex: Female

DRUGS (1)
  1. MIRENA [Suspect]
     Active Substance: LEVONORGESTREL
     Dosage: 20 ?G PER DAY CONTINUOUSLY
     Route: 015

REACTIONS (20)
  - Flat affect [None]
  - Menorrhagia [None]
  - Presyncope [None]
  - Feeling abnormal [None]
  - Depressed mood [None]
  - Mental disorder [None]
  - Emotional disorder [None]
  - Suicidal ideation [None]
  - Homicidal ideation [None]
  - Dizziness [None]
  - Hyperhidrosis [None]
  - Device issue [None]
  - Depression [None]
  - Dysmenorrhoea [None]
  - Poor quality sleep [None]
  - Eating disorder [None]
  - Self-injurious ideation [None]
  - Irritability [None]
  - Sluggishness [None]
  - Abnormal behaviour [None]
